FAERS Safety Report 24655228 (Version 2)
Quarter: 2024Q4

REPORT INFORMATION
  Report Type: Spontaneous
  Country: US (occurrence: US)
  Receive Date: 20241123
  Receipt Date: 20241205
  Transmission Date: 20250115
  Serious: Yes (Other)
  Sender: ABBVIE
  Company Number: US-ABBVIE-6007884

PATIENT
  Sex: Female

DRUGS (2)
  1. REFRESH CLASSIC [Suspect]
     Active Substance: POLYVINYL ALCOHOL\POVIDONE
     Indication: Dry eye
     Route: 047
  2. ANTAZOLINE PHOSPHATE\NAPHAZOLINE HYDROCHLORIDE [Suspect]
     Active Substance: ANTAZOLINE PHOSPHATE\NAPHAZOLINE HYDROCHLORIDE
     Indication: Dry eye
     Route: 047

REACTIONS (3)
  - Blepharoplasty [Unknown]
  - Conjunctival oedema [Unknown]
  - Eye irritation [Recovered/Resolved]
